FAERS Safety Report 8586850 (Version 6)
Quarter: 2012Q4

REPORT INFORMATION
  Report Type: 
  Country: US (occurrence: US)
  Receive Date: 20120530
  Receipt Date: 20120830
  Transmission Date: 20130627
  Serious: Yes (Other)
  Sender: FDA-Public Use
  Company Number: US-BAYER-2012-053357

PATIENT
  Age: 31 Year
  Sex: Female
  Weight: 63.49 kg

DRUGS (3)
  1. MIRENA [Suspect]
     Indication: CONTRACEPTION
     Dosage: 20 mcg/24hr, CONT
     Route: 015
     Dates: start: 20110821, end: 20120529
  2. MIRENA [Suspect]
     Indication: MENORRHAGIA
  3. ANTINEOPLASTIC AGENTS [Concomitant]
     Indication: HODGKIN^S DISEASE

REACTIONS (3)
  - Device expulsion [Recovering/Resolving]
  - Vaginal haemorrhage [None]
  - Abdominal pain lower [None]
